FAERS Safety Report 23915835 (Version 1)
Quarter: 2024Q2

REPORT INFORMATION
  Report Type: Report from Study
  Country: NL (occurrence: NL)
  Receive Date: 20240529
  Receipt Date: 20240529
  Transmission Date: 20240716
  Serious: Yes (Other)
  Sender: FDA-Public Use
  Company Number: NL-VER-202400040

PATIENT
  Sex: Male

DRUGS (3)
  1. TRIPTORELIN PAMOATE [Suspect]
     Active Substance: TRIPTORELIN PAMOATE
     Indication: Prostate cancer
     Dosage: 0.133 MILLIGRAM(S) (22.5 MILLIGRAM(S), 1 IN 24 WEEK, SUSPENSION FOR INJECTION
     Route: 030
     Dates: start: 20230719
  2. TRIPTORELIN PAMOATE [Suspect]
     Active Substance: TRIPTORELIN PAMOATE
     Indication: Prostate cancer
     Dosage: 0.133 MILLIGRAM(S) (22.5 MILLIGRAM(S), 1 IN 24 WEEK, SUSPENSION FOR INJECTION
     Route: 030
     Dates: start: 20240108
  3. TRIPTORELIN PAMOATE [Suspect]
     Active Substance: TRIPTORELIN PAMOATE
     Indication: Prostate cancer
     Dosage: 0.133 MILLIGRAM(S), 22.5 MILLIGRAM(S), 1 IN 24 WEEK, SUSPENSION FOR INJECTION
     Route: 030
     Dates: start: 20210331

REACTIONS (1)
  - Terminal state [Unknown]
